FAERS Safety Report 8237524-5 (Version None)
Quarter: 2012Q1

REPORT INFORMATION
  Report Type: 
  Country: None (occurrence: None)
  Receive Date: 20120327
  Receipt Date: 20120322
  Transmission Date: 20120608
  Serious: Yes (Other)
  Sender: FDA-Public Use
  Company Number: PHHY2012MX025707

PATIENT
  Sex: Female

DRUGS (3)
  1. OMEPRAZOLE [Concomitant]
     Dosage: 2 DF, PER DAY
     Dates: start: 20010317
  2. DAFLOXEN [Concomitant]
     Dosage: 2 DF, PER DAY
     Dates: start: 20110317
  3. DIOVAN HCT [Suspect]
     Indication: HYPERTENSION
     Dosage: 1 DF (80MG VALS/12.5MG HYDROCHLOROTHIAZIDE) DAILY
     Dates: start: 20110101

REACTIONS (4)
  - JOINT INJURY [None]
  - FALL [None]
  - NERVE INJURY [None]
  - LIGAMENTITIS [None]
